FAERS Safety Report 7255653-X (Version None)
Quarter: 2011Q1

REPORT INFORMATION
  Report Type: 
  Country: None (occurrence: None)
  Receive Date: 20110129
  Receipt Date: 20100827
  Transmission Date: 20110831
  Serious: No
  Sender: FDA-Public Use
  Company Number: US-ABBOTT-10P-163-0666895-00

PATIENT
  Age: 27 Year
  Sex: Female

DRUGS (5)
  1. CLONAZEPAM [Concomitant]
     Indication: INSOMNIA
  2. PREDNISONE [Concomitant]
     Indication: PRODUCT USED FOR UNKNOWN INDICATION
  3. NEPROXINE [Concomitant]
     Indication: PRODUCT USED FOR UNKNOWN INDICATION
  4. HUMIRA [Suspect]
     Indication: RHEUMATOID ARTHRITIS
  5. WELLBUTRIN [Concomitant]
     Indication: PRODUCT USED FOR UNKNOWN INDICATION

REACTIONS (4)
  - CONTUSION [None]
  - INCREASED TENDENCY TO BRUISE [None]
  - ARTHRALGIA [None]
  - HYPOKINESIA [None]
